FAERS Safety Report 24926965 (Version 2)
Quarter: 2025Q1

REPORT INFORMATION
  Report Type: Report from Study
  Country: US (occurrence: US)
  Receive Date: 20250205
  Receipt Date: 20250305
  Transmission Date: 20250408
  Serious: Yes (Other)
  Sender: ACADIA PHARMACEUTICALS
  Company Number: US-ACADIA PHARMACEUTICALS INC.-ACA-2025-TRF-001068

PATIENT
  Sex: Female

DRUGS (2)
  1. DAYBUE [Suspect]
     Active Substance: TROFINETIDE
     Indication: Rett syndrome
     Dosage: 10 MILLILITER, QD
     Route: 048
  2. DAYBUE [Suspect]
     Active Substance: TROFINETIDE
     Dosage: 10 MILLILITER, BID
     Route: 048

REACTIONS (7)
  - Pneumonia [Unknown]
  - COVID-19 [Unknown]
  - Dental operation [Unknown]
  - Urinary tract infection [Unknown]
  - Intentional dose omission [Unknown]
  - Somnolence [Not Recovered/Not Resolved]
  - Underdose [Not Recovered/Not Resolved]
